FAERS Safety Report 5561031-1 (Version None)
Quarter: 2007Q4

REPORT INFORMATION
  Report Type: 
  Country: None (occurrence: None)
  Receive Date: 20071215
  Receipt Date: 20071129
  Transmission Date: 20080405
  Serious: No
  Sender: FDA-Public Use
  Company Number: US-ABBOTT-07P-163-0426934-00

PATIENT
  Sex: Female
  Weight: 74.91 kg

DRUGS (4)
  1. HUMIRA [Suspect]
     Indication: COLITIS ULCERATIVE
     Route: 058
     Dates: start: 20071128, end: 20071128
  2. ASOCAL [Concomitant]
     Indication: COLITIS ULCERATIVE
     Dosage: EIGHT TABLETS
     Route: 048
     Dates: start: 20020101
  3. LIADA [Concomitant]
     Indication: COLITIS ULCERATIVE
     Dosage: TWO TABLETS
     Route: 048
     Dates: start: 20070101
  4. MERCAPTOPURINE [Concomitant]
     Indication: COLITIS ULCERATIVE
     Route: 048
     Dates: start: 20050101

REACTIONS (1)
  - INJECTION SITE HAEMORRHAGE [None]
